FAERS Safety Report 5652206-1 (Version None)
Quarter: 2008Q1

REPORT INFORMATION
  Report Type: 
  Country: None (occurrence: None)
  Receive Date: 20080304
  Receipt Date: 20080218
  Transmission Date: 20080703
  Serious: Yes (Other)
  Sender: FDA-Public Use
  Company Number: BR-1165053

PATIENT

DRUGS (1)
  1. MYDRIACYL [Suspect]
     Route: 047

REACTIONS (4)
  - ACCIDENT [None]
  - ENDOPHTHALMITIS [None]
  - MYOCARDIAL INFARCTION [None]
  - VISION BLURRED [None]
